FAERS Safety Report 4975577-8 (Version None)
Quarter: 2006Q2

REPORT INFORMATION
  Report Type: 
  Country: None (occurrence: None)
  Receive Date: 20060410
  Receipt Date: 20060329
  Transmission Date: 20061013
  Serious: Yes (Disabling)
  Sender: FDA-Public Use
  Company Number: GXKR2006NL01811

PATIENT
  Age: 62 Year
  Sex: Female

DRUGS (1)
  1. DEXAMETHASONE [Suspect]
     Indication: MULTIPLE SCLEROSIS
     Dosage: 16 MG, QD, ORAL
     Route: 048

REACTIONS (8)
  - CONDITION AGGRAVATED [None]
  - COORDINATION ABNORMAL [None]
  - HEMIPARESIS [None]
  - HYPOAESTHESIA [None]
  - NERVE INJURY [None]
  - PRIMARY PROGRESSIVE MULTIPLE SCLEROSIS [None]
  - REBOUND EFFECT [None]
  - STEROID WITHDRAWAL SYNDROME [None]
